FAERS Safety Report 8263447-1 (Version None)
Quarter: 2012Q2

REPORT INFORMATION
  Report Type: 
  Country: None (occurrence: None)
  Receive Date: 20120405
  Receipt Date: 20120328
  Transmission Date: 20120825
  Serious: Yes (Hospitalization, Other)
  Sender: FDA-Public Use
  Company Number: US-ABBOTT-12P-163-0920360-00

PATIENT
  Sex: Male
  Weight: 86.26 kg

DRUGS (2)
  1. CASODEX [Suspect]
     Indication: PROSTATE CANCER
     Dates: start: 20120126, end: 20120201
  2. LUPRON DEPOT [Suspect]
     Indication: PROSTATE CANCER
     Dates: start: 20120123, end: 20120131

REACTIONS (3)
  - BLOOD GLUCOSE INCREASED [None]
  - JAUNDICE [None]
  - ASTHENIA [None]
